FAERS Safety Report 7206853-6 (Version None)
Quarter: 2010Q4

REPORT INFORMATION
  Report Type: 
  Country: None (occurrence: None)
  Receive Date: 20101230
  Receipt Date: 20101230
  Transmission Date: 20110411
  Serious: Yes (Life-Threatening)
  Sender: FDA-Public Use
  Company Number: None

PATIENT

DRUGS (2)
  1. LOVENOX [Suspect]
     Indication: DEEP VEIN THROMBOSIS
     Dates: start: 20101216, end: 20101217
  2. LOVENOX [Suspect]

REACTIONS (3)
  - DRUG ADMINISTRATION ERROR [None]
  - DRUG LABEL CONFUSION [None]
  - MEDICATION ERROR [None]
